FAERS Safety Report 7568484-8 (Version None)
Quarter: 2011Q2

REPORT INFORMATION
  Report Type: 
  Country: None (occurrence: None)
  Receive Date: 20110617
  Receipt Date: 20110603
  Transmission Date: 20111010
  Serious: Yes (Hospitalization, Other)
  Sender: FDA-Public Use
  Company Number: TUK2011A00032

PATIENT
  Age: 60 Year
  Sex: Female

DRUGS (9)
  1. ACTOS [Suspect]
     Indication: TYPE 2 DIABETES MELLITUS
     Dosage: 15 MG, ORAL
     Route: 048
     Dates: start: 20081201, end: 20091101
  2. SIMVASTATIN [Concomitant]
  3. ASPIRIN [Concomitant]
  4. FUROSEMIDE [Concomitant]
  5. MIRTAZAPINE [Concomitant]
  6. GLICLAZIDE (GLICLAZIDE) [Concomitant]
  7. CANDESARTAN CILEXETIL [Concomitant]
  8. CALCICHEW-D3 FORTEI  (COLECALCIFEROL, CALCIUM CARBONATE) [Concomitant]
  9. METFORMIN HCL [Concomitant]

REACTIONS (4)
  - OEDEMA PERIPHERAL [None]
  - CELLULITIS [None]
  - SKIN HYPERTROPHY [None]
  - BLISTER [None]
